FAERS Safety Report 4887461-9 (Version None)
Quarter: 2006Q1

REPORT INFORMATION
  Report Type: 
  Country: None (occurrence: None)
  Receive Date: 20060118
  Receipt Date: 20060109
  Transmission Date: 20060701
  Serious: Yes (Death, Hospitalization)
  Sender: FDA-Public Use
  Company Number: 2005-135389-NL

PATIENT
  Age: 67 Year
  Sex: Male

DRUGS (8)
  1. MIRTAZAPINE [Suspect]
     Indication: DEPRESSION
     Dosage: 15 MG/30 MG, ORAL
     Route: 048
     Dates: start: 20051101, end: 20051123
  2. MIRTAZAPINE [Suspect]
     Indication: MAJOR DEPRESSION
     Dosage: 15 MG/30 MG, ORAL
     Route: 048
     Dates: start: 20051101, end: 20051123
  3. MIRTAZAPINE [Suspect]
     Indication: DEPRESSION
     Dosage: 15 MG/30 MG, ORAL
     Route: 048
     Dates: start: 20051123, end: 20051202
  4. MIRTAZAPINE [Suspect]
     Indication: MAJOR DEPRESSION
     Dosage: 15 MG/30 MG, ORAL
     Route: 048
     Dates: start: 20051123, end: 20051202
  5. PRAZEPAM [Concomitant]
  6. VALSARTAN [Concomitant]
  7. OLANZAPINE [Suspect]
     Indication: DEPRESSION
     Dosage: 10 MG, ORAL
     Route: 048
     Dates: start: 20051123, end: 20051202
  8. OLANZAPINE [Suspect]
     Indication: MAJOR DEPRESSION
     Dosage: 10 MG, ORAL
     Route: 048
     Dates: start: 20051123, end: 20051202

REACTIONS (1)
  - SUDDEN DEATH [None]
